FAERS Safety Report 5027938-9 (Version None)
Quarter: 2006Q2

REPORT INFORMATION
  Report Type: 
  Country: None (occurrence: None)
  Receive Date: 20060609
  Receipt Date: 20060602
  Transmission Date: 20061013
  Serious: Yes (Other)
  Sender: FDA-Public Use
  Company Number: TRP_0150_2005

PATIENT
  Age: 49 Year
  Sex: Female
  Weight: 53.978 kg

DRUGS (14)
  1. RIBASPHERE [Suspect]
     Indication: HEPATITIS C
     Dosage: 400 MG BID PO
     Route: 048
     Dates: start: 20050101, end: 20050601
  2. RIBASPHERE [Suspect]
     Indication: HEPATITIS C
     Dosage: 400 MG BID PO
     Route: 048
     Dates: start: 20051001, end: 20060101
  3. PEG-INTRON [Suspect]
     Indication: HEPATITIS C
     Dosage: DF SC
     Route: 058
     Dates: start: 20050101, end: 20050601
  4. PEG-INTRON [Suspect]
     Indication: HEPATITIS C
     Dosage: DF SC
     Route: 058
     Dates: start: 20051001, end: 20060101
  5. FIORICET [Concomitant]
  6. HYDROCODONE BITARTRATE [Concomitant]
  7. INDERAL [Concomitant]
  8. LEXAPRO [Concomitant]
  9. PROMETHAZINE [Concomitant]
  10. RANITIDINE [Concomitant]
  11. SEROQUEL [Concomitant]
  12. VALIUM [Concomitant]
  13. FIORICET [Concomitant]
  14. HYDROCODONE BITARTRATE [Concomitant]

REACTIONS (20)
  - ASTHENIA [None]
  - BACK PAIN [None]
  - COLON POLYPECTOMY [None]
  - CONTUSION [None]
  - DEHYDRATION [None]
  - DEPRESSION [None]
  - DYSURIA [None]
  - EPISTAXIS [None]
  - FATIGUE [None]
  - INJECTION SITE SWELLING [None]
  - LOSS OF CONSCIOUSNESS [None]
  - NAUSEA [None]
  - PANCREATITIS [None]
  - RECTAL HAEMORRHAGE [None]
  - RESPIRATORY DISTRESS [None]
  - SCAB [None]
  - SHOULDER PAIN [None]
  - TREMOR [None]
  - VOMITING [None]
  - WEIGHT DECREASED [None]
